FAERS Safety Report 6356732-1 (Version None)
Quarter: 2009Q3

REPORT INFORMATION
  Report Type: 
  Country: None (occurrence: None)
  Receive Date: 20090914
  Receipt Date: 20090914
  Transmission Date: 20100115
  Serious: No
  Sender: FDA-Public Use
  Company Number: None

PATIENT
  Sex: Female
  Weight: 52.6173 kg

DRUGS (2)
  1. MUCINEX [Suspect]
     Indication: COUGH
     Dosage: 1 TSP  EVERY 4-6 HRS
     Dates: start: 20090820, end: 20090823
  2. MUCINEX [Suspect]
     Indication: DRY THROAT
     Dosage: 1 TSP  EVERY 4-6 HRS
     Dates: start: 20090820, end: 20090823

REACTIONS (1)
  - DISCOMFORT [None]
